FAERS Safety Report 21786202 (Version 1)
Quarter: 2022Q4

REPORT INFORMATION
  Report Type: Report from Study
  Country: JP (occurrence: JP)
  Receive Date: 20221228
  Receipt Date: 20221228
  Transmission Date: 20230113
  Serious: No
  Sender: FDA-Public Use
  Company Number: JP-UCBSA-2022040903

PATIENT
  Age: 15 Year
  Sex: Female
  Weight: 32.3 kg

DRUGS (11)
  1. FENFLURAMINE HYDROCHLORIDE [Suspect]
     Active Substance: FENFLURAMINE HYDROCHLORIDE
     Indication: Severe myoclonic epilepsy of infancy
     Dosage: 0.2 MILLIGRAM/KILOGRAM, ONCE DAILY (QD)
     Route: 048
     Dates: start: 20191120, end: 20191217
  2. FENFLURAMINE HYDROCHLORIDE [Suspect]
     Active Substance: FENFLURAMINE HYDROCHLORIDE
     Dosage: 0.4 MILLIGRAM/KILOGRAM, ONCE DAILY (QD)
     Route: 048
     Dates: start: 20191217, end: 20200114
  3. FENFLURAMINE HYDROCHLORIDE [Suspect]
     Active Substance: FENFLURAMINE HYDROCHLORIDE
     Dosage: 0.6 MILLIGRAM/KILOGRAM, ONCE DAILY (QD)
     Route: 048
     Dates: start: 20200114, end: 20200518
  4. FENFLURAMINE HYDROCHLORIDE [Suspect]
     Active Substance: FENFLURAMINE HYDROCHLORIDE
     Dosage: 0.8 MILLIGRAM/KILOGRAM, ONCE DAILY (QD)
     Route: 048
     Dates: start: 20200518, end: 20200812
  5. FENFLURAMINE HYDROCHLORIDE [Suspect]
     Active Substance: FENFLURAMINE HYDROCHLORIDE
     Dosage: 0.6 MILLIGRAM/KILOGRAM, ONCE DAILY (QD)
     Route: 048
     Dates: start: 20200812
  6. VALPROIC ACID [Concomitant]
     Active Substance: VALPROIC ACID
     Dosage: 752 MILLIGRAM, BID
     Route: 048
     Dates: start: 20170424
  7. TOPIRAMATE [Concomitant]
     Active Substance: TOPIRAMATE
     Dosage: 150 MILLIGRAM, BID
     Route: 048
     Dates: start: 20190318
  8. POTASSIUM BROMIDE [Concomitant]
     Active Substance: POTASSIUM BROMIDE
     Dosage: 0.6 GRAM, BID
     Route: 048
     Dates: start: 201901
  9. PERAMPANEL [Concomitant]
     Active Substance: PERAMPANEL
     Dosage: 1 MILLIGRAM, QPM
     Route: 048
     Dates: start: 20201113
  10. LEVOCARNITINE [Concomitant]
     Active Substance: LEVOCARNITINE
     Dosage: 200 MILLIGRAM, BID
     Route: 048
     Dates: start: 20160330
  11. PANVITAN                           /05664201/ [Concomitant]
     Dosage: 1 GRAM, BID
     Route: 048
     Dates: start: 20200812

REACTIONS (1)
  - Blood glucose decreased [Recovered/Resolved]

NARRATIVE: CASE EVENT DATE: 20210811
